FAERS Safety Report 4416091-8 (Version None)
Quarter: 2004Q3

REPORT INFORMATION
  Report Type: 
  Country: None (occurrence: None)
  Receive Date: 20040802
  Receipt Date: 20040723
  Transmission Date: 20050211
  Serious: Yes (Hospitalization)
  Sender: FDA-Public Use
  Company Number: AWBNIASPAND2004-2

PATIENT
  Age: 51 Year
  Sex: Male

DRUGS (3)
  1. NIASPAN [Suspect]
     Indication: DYSLIPIDAEMIA
     Dosage: 750 MG QD PO
     Route: 048
  2. IRBESARTAN [Concomitant]
  3. NATEGLINIDE [Concomitant]

REACTIONS (4)
  - BLOOD PRESSURE INCREASED [None]
  - DYSPNOEA [None]
  - FLUSHING [None]
  - GENERALISED ERYTHEMA [None]
